FAERS Safety Report 14879258 (Version 2)
Quarter: 2018Q2

REPORT INFORMATION
  Report Type: Spontaneous
  Country: US (occurrence: US)
  Receive Date: 20180511
  Receipt Date: 20180601
  Transmission Date: 20180711
  Serious: Yes (Other)
  Sender: FDA-Public Use
  Company Number: US-TORRENT-00006139

PATIENT
  Age: 69 Year
  Sex: Female
  Weight: 66 kg

DRUGS (7)
  1. CLONAZEPAM. [Concomitant]
     Active Substance: CLONAZEPAM
     Indication: ANXIETY
     Dosage: 5 MG TABLETS BY MOUTH, GENERIC FOR KLONOPIN, BEGAN TAKING 15 YEARS AGO
     Route: 048
  2. LISINOPRIL. [Concomitant]
     Active Substance: LISINOPRIL
     Indication: HYPERTENSION
     Dosage: 20 MG TABLETS BY MOUTH ONCE A DAY, BEGAN TAKING 4 YEARS AGO
     Route: 048
  3. VENLAFAXINE [Suspect]
     Active Substance: VENLAFAXINE HYDROCHLORIDE
     Indication: DEPRESSION
     Dosage: 37.5 MG, 2 CAPSULES BY MOUTH IN THE MORNING
     Route: 048
  4. VENLAFAXINE HCL [Concomitant]
     Active Substance: VENLAFAXINE HYDROCHLORIDE
     Indication: PANIC ATTACK
     Dosage: 187.5 MG CAPSULES, BY MOUTH TAKING 2
     Route: 048
  5. ATORVASTATIN [Concomitant]
     Active Substance: ATORVASTATIN
     Indication: BLOOD CHOLESTEROL INCREASED
     Dosage: 10 MG TABLETS, BEGAN TAKING ONE AND HALF YEAR AGO
     Route: 048
  6. HYDROCHLOROTHIAZIDE. [Concomitant]
     Active Substance: HYDROCHLOROTHIAZIDE
     Indication: HYPERTENSION
     Dosage: BEGAN TAKING 3 YEARS AGO, 12.5 MG TABLETS BY MOUTH ONCE A DAY
     Route: 048
  7. DOXEPIN [Concomitant]
     Active Substance: DOXEPIN
     Indication: INSOMNIA
     Dosage: 50 MG TABLETS BY MOUTH AT NIGHT, GENERIC FOR SINEQUAN, TAKING FOR 47 YEARS
     Route: 048

REACTIONS (8)
  - Product substitution issue [Unknown]
  - Depressed mood [Recovered/Resolved]
  - Major depression [Unknown]
  - Nightmare [Recovered/Resolved]
  - Feeling abnormal [Recovered/Resolved]
  - Disease recurrence [Unknown]
  - Product use complaint [Unknown]
  - Crying [Recovered/Resolved]

NARRATIVE: CASE EVENT DATE: 20180413
